FAERS Safety Report 14177803 (Version 1)
Quarter: 2017Q4

REPORT INFORMATION
  Report Type: Spontaneous
  Country: GB (occurrence: GB)
  Receive Date: 20171110
  Receipt Date: 20171110
  Transmission Date: 20180321
  Serious: Yes (Death, Other)
  Sender: FDA-Public Use
  Company Number: GB-INTERNATIONAL MEDICATION SYSTEMS, LIMITED-2033848

PATIENT
  Age: 58 Year
  Sex: Female

DRUGS (2)
  1. PREGABALIN. [Suspect]
     Active Substance: PREGABALIN
  2. MORPHINE SULFATE. [Suspect]
     Active Substance: MORPHINE SULFATE

REACTIONS (6)
  - Overdose [Fatal]
  - Pneumonia [Fatal]
  - Death [Fatal]
  - Toxicity to various agents [Fatal]
  - Wrong drug administered [Fatal]
  - Wrong patient received medication [Fatal]

NARRATIVE: CASE EVENT DATE: 20160804
